FAERS Safety Report 17653316 (Version 2)
Quarter: 2020Q2

REPORT INFORMATION
  Report Type: Spontaneous
  Country: US (occurrence: US)
  Receive Date: 20200410
  Receipt Date: 20200608
  Transmission Date: 20200713
  Serious: No
  Sender: FDA-Public Use
  Company Number: US-SA-2020SA088720

PATIENT

DRUGS (1)
  1. DUPIXENT [Suspect]
     Active Substance: DUPILUMAB
     Indication: DERMATITIS ATOPIC
     Dosage: 200 MG, QOW
     Route: 058
     Dates: start: 201808, end: 201911

REACTIONS (4)
  - Rash [Unknown]
  - Pruritus [Unknown]
  - Rebound atopic dermatitis [Unknown]
  - Product use issue [Unknown]

NARRATIVE: CASE EVENT DATE: 201808
